FAERS Safety Report 8098901-9 (Version None)
Quarter: 2012Q1

REPORT INFORMATION
  Report Type: 
  Country: None (occurrence: None)
  Receive Date: 20120129
  Receipt Date: 20110926
  Transmission Date: 20120608
  Serious: No
  Sender: FDA-Public Use
  Company Number: US-ABBOTT-11P-163-0857915-00

PATIENT
  Age: 61 Year
  Sex: Female

DRUGS (5)
  1. UNKNOWN TRIGLYCERIDE MEDICATION [Suspect]
     Indication: BLOOD TRIGLYCERIDES INCREASED
  2. ZOCOR [Concomitant]
  3. ZOCOR [Concomitant]
     Indication: PRODUCT USED FOR UNKNOWN INDICATION
  4. HUMIRA [Suspect]
     Indication: PRODUCT USED FOR UNKNOWN INDICATION
     Dates: start: 20060101
  5. DIOVAN [Concomitant]
     Indication: HYPERTENSION

REACTIONS (4)
  - INCORRECT STORAGE OF DRUG [None]
  - PSORIASIS [None]
  - HEPATIC ENZYME INCREASED [None]
  - STRESS [None]
